FAERS Safety Report 5519297-X (Version None)
Quarter: 2007Q4

REPORT INFORMATION
  Report Type: 
  Country: None (occurrence: None)
  Receive Date: 20071116
  Receipt Date: 20071107
  Transmission Date: 20080405
  Serious: Yes (Other)
  Sender: FDA-Public Use
  Company Number: PHNU2007DE03369

PATIENT
  Age: 43 Year
  Sex: Female
  Weight: 64 kg

DRUGS (1)
  1. VOLTAREN [Suspect]
     Indication: BACK PAIN
     Dosage: 1 DF, ONCE/SINGLE
     Route: 048
     Dates: start: 20071006, end: 20071006

REACTIONS (5)
  - HYPERVENTILATION [None]
  - PARAESTHESIA [None]
  - RASH [None]
  - SWOLLEN TONGUE [None]
  - TACHYCARDIA [None]
